FAERS Safety Report 15746990 (Version 1)
Quarter: 2018Q4

REPORT INFORMATION
  Report Type: Report from Study
  Country: FR (occurrence: FR)
  Receive Date: 20181220
  Receipt Date: 20181220
  Transmission Date: 20190205
  Serious: Yes (Hospitalization)
  Sender: FDA-Public Use
  Company Number: FR-MYLANLABS-2018M1089333

PATIENT

DRUGS (1)
  1. BACLOFEN. [Suspect]
     Active Substance: BACLOFEN
     Indication: ALCOHOL USE DISORDER
     Dosage: TITRATED BACLOFEN DOSE
     Route: 065

REACTIONS (3)
  - Drug dose titration not performed [Unknown]
  - Product administration interrupted [Unknown]
  - Confusional state [Unknown]
